FAERS Safety Report 6925933-3 (Version None)
Quarter: 2010Q3

REPORT INFORMATION
  Report Type: 
  Country: None (occurrence: None)
  Receive Date: 20100816
  Receipt Date: 20100812
  Transmission Date: 20110219
  Serious: Yes (Death)
  Sender: FDA-Public Use
  Company Number: PHFR2010GB00540

PATIENT
  Sex: Male

DRUGS (4)
  1. CLOZARIL [Suspect]
     Indication: SCHIZOPHRENIA
     Dosage: 350 MG, UNK
     Dates: start: 20031001
  2. CLOZARIL [Suspect]
     Dosage: UNK
     Dates: start: 20070703
  3. CLOZAPINE [Concomitant]
     Indication: SCHIZOPHRENIA
     Dosage: UNK
     Dates: end: 20041101
  4. ESCITALOPRAM [Concomitant]
     Dosage: 10 MG, UNK

REACTIONS (1)
  - OVERDOSE [None]
